FAERS Safety Report 5246175-6 (Version None)
Quarter: 2007Q1

REPORT INFORMATION
  Report Type: 
  Country: None (occurrence: None)
  Receive Date: 20070220
  Receipt Date: 20070206
  Transmission Date: 20070707
  Serious: Yes (Hospitalization)
  Sender: FDA-Public Use
  Company Number: 2007BM000011

PATIENT
  Age: 74 Year
  Sex: Female
  Weight: 43 kg

DRUGS (5)
  1. PREDNISOLONE [Suspect]
     Indication: ALVEOLITIS ALLERGIC
     Dosage: SEE IMAGE
     Dates: start: 20041201, end: 20050101
  2. PREDNISOLONE [Suspect]
     Indication: ALVEOLITIS ALLERGIC
     Dosage: SEE IMAGE
     Dates: start: 20050101
  3. CYCLOSPORINE [Suspect]
     Indication: ALVEOLITIS ALLERGIC
     Dosage: SEE IMAGE
     Dates: start: 20050201, end: 20050101
  4. CYCLOSPORINE [Suspect]
     Indication: ALVEOLITIS ALLERGIC
     Dosage: SEE IMAGE
     Dates: start: 20050101
  5. ORAPRED [Suspect]

REACTIONS (5)
  - BLOOD CHOLESTEROL INCREASED [None]
  - BLOOD LACTATE DEHYDROGENASE INCREASED [None]
  - BRONCHOPULMONARY ASPERGILLOSIS [None]
  - LABORATORY TEST ABNORMAL [None]
  - MUSCLE ABSCESS [None]
